FAERS Safety Report 25842728 (Version 1)
Quarter: 2025Q3

REPORT INFORMATION
  Report Type: Spontaneous
  Country: CN (occurrence: CN)
  Receive Date: 20250924
  Receipt Date: 20250924
  Transmission Date: 20251020
  Serious: Yes (Hospitalization)
  Sender: PFIZER
  Company Number: CN-PFIZER INC-PV202500113483

PATIENT
  Age: 82 Year
  Sex: Male

DRUGS (1)
  1. LINEZOLID [Suspect]
     Active Substance: LINEZOLID
     Indication: Bacterial infection
     Dosage: 0.6 G, 2X/DAY
     Route: 041
     Dates: start: 20250913, end: 20250915

REACTIONS (6)
  - Erythema [Recovering/Resolving]
  - Skin swelling [Recovering/Resolving]
  - Skin exfoliation [Recovering/Resolving]
  - Hypotension [Recovering/Resolving]
  - Pruritus [Recovering/Resolving]
  - Skin oedema [Recovering/Resolving]

NARRATIVE: CASE EVENT DATE: 20250914
